FAERS Safety Report 4562214-X (Version None)
Quarter: 2005Q1

REPORT INFORMATION
  Report Type: 
  Country: None (occurrence: None)
  Receive Date: 20050127
  Receipt Date: 20050124
  Transmission Date: 20050727
  Serious: Yes (Other)
  Sender: FDA-Public Use
  Company Number: PHEH2005US01212

PATIENT
  Age: 21 Year
  Sex: Male

DRUGS (2)
  1. CHOLESTEROL- AND TRIGLYCERIDE REDUCERS [Suspect]
     Route: 048
  2. LAMISIL [Suspect]
     Indication: NAIL TINEA
     Dosage: 250 MG, QD
     Route: 048
     Dates: start: 20041101, end: 20041201

REACTIONS (2)
  - DRUG INTERACTION [None]
  - THROAT TIGHTNESS [None]
